FAERS Safety Report 11724370 (Version 2)
Quarter: 2016Q1

REPORT INFORMATION
  Report Type: Report from Study
  Country: DE (occurrence: CL)
  Receive Date: 20151111
  Receipt Date: 20160204
  Transmission Date: 20160525
  Serious: Yes (Other)
  Sender: FDA-Public Use
  Company Number: DE-ACTELION-A-US2015-127106

PATIENT
  Age: 33 Year
  Sex: Female

DRUGS (5)
  1. FUROSEMIDE. [Concomitant]
     Active Substance: FUROSEMIDE
     Dosage: 20 MG, MONDAY - WEDNESDAY- FRIDAY
  2. SPIRONOLACTONE. [Concomitant]
     Active Substance: SPIRONOLACTONE
     Dosage: 25 MG, TUESDAY AND THURSDAY
  3. WARFARIN [Concomitant]
     Active Substance: WARFARIN
     Dosage: DEPENDING ON SCHEME
  4. VENTAVIS [Suspect]
     Active Substance: ILOPROST
     Indication: PULMONARY HYPERTENSION
     Dosage: 0.5 ML, 6X/DAY
     Route: 055
     Dates: start: 20131205
  5. SILDENAFIL. [Concomitant]
     Active Substance: SILDENAFIL
     Dosage: 25 MG, Q 8HOURS

REACTIONS (6)
  - Physical disability [Recovering/Resolving]
  - Fatigue [Recovering/Resolving]
  - Chest pain [Recovering/Resolving]
  - Pulmonary function test abnormal [Recovering/Resolving]
  - Pulmonary arterial pressure increased [Recovering/Resolving]
  - Vascular resistance systemic increased [Recovering/Resolving]

NARRATIVE: CASE EVENT DATE: 20151001
